FAERS Safety Report 4755167-2 (Version None)
Quarter: 2005Q3

REPORT INFORMATION
  Report Type: 
  Country: None (occurrence: None)
  Receive Date: 20050829
  Receipt Date: 20050412
  Transmission Date: 20060218
  Serious: Yes (Hospitalization)
  Sender: FDA-Public Use
  Company Number: EMADSS2003000922

PATIENT
  Sex: Female

DRUGS (3)
  1. REMICADE [Suspect]
     Indication: DRUG USE FOR UNKNOWN INDICATION
     Route: 041
     Dates: start: 20030116
  2. CLONAZEPAM [Concomitant]
     Route: 048
     Dates: start: 20020117
  3. ROFECOXIB [Concomitant]
     Route: 048
     Dates: start: 20021115

REACTIONS (2)
  - DRUG INEFFECTIVE [None]
  - INTERVERTEBRAL DISC PROTRUSION [None]
